FAERS Safety Report 13763957 (Version 4)
Quarter: 2018Q1

REPORT INFORMATION
  Report Type: Spontaneous
  Country: AT (occurrence: AT)
  Receive Date: 20170718
  Receipt Date: 20180207
  Transmission Date: 20180508
  Serious: Yes (Other)
  Sender: FDA-Public Use
  Company Number: AT-PFIZER INC-2017304327

PATIENT
  Age: 33 Year
  Sex: Male

DRUGS (8)
  1. CONVULEX [Interacting]
     Active Substance: VALPROIC ACID
     Dosage: 1500 MG AS EVENING AT REDUCED DOSE AND UNSPECIFIED DOSE
     Route: 042
     Dates: start: 20170321, end: 20170321
  2. TEMESTA (LORAZEPAM) [Interacting]
     Active Substance: LORAZEPAM
     Dosage: 2 MG, UNK
     Route: 048
     Dates: start: 20170322, end: 20170322
  3. HALDOL [Suspect]
     Active Substance: HALOPERIDOL
     Dosage: 10 MG, 1X/DAY
     Route: 048
     Dates: start: 20170320, end: 20170320
  4. TEMESTA (LORAZEPAM) [Interacting]
     Active Substance: LORAZEPAM
     Dosage: 6 MG, UNK
     Route: 048
     Dates: start: 20170321, end: 20170321
  5. CONVULEX [Interacting]
     Active Substance: VALPROIC ACID
     Dosage: 2000 MG, UNK
     Route: 042
     Dates: start: 20170320, end: 20170320
  6. TEMESTA (LORAZEPAM) [Suspect]
     Active Substance: LORAZEPAM
     Dosage: 8 MG, UNK
     Route: 048
     Dates: start: 20170320, end: 20170320
  7. HALDOL [Suspect]
     Active Substance: HALOPERIDOL
     Dosage: 10 MG, 1X/DAY
     Route: 048
     Dates: start: 20170322, end: 20170324
  8. HALDOL [Suspect]
     Active Substance: HALOPERIDOL
     Dosage: 5 MG, 1X/DAY
     Route: 048
     Dates: start: 20170321, end: 20170321

REACTIONS (2)
  - Sinus bradycardia [Recovered/Resolved]
  - Drug interaction [Recovered/Resolved]

NARRATIVE: CASE EVENT DATE: 20170320
